FAERS Safety Report 22650533 (Version 1)
Quarter: 2023Q2

REPORT INFORMATION
  Report Type: Spontaneous
  Country: US (occurrence: None)
  Receive Date: 20230627
  Receipt Date: 20230627
  Transmission Date: 20230721
  Serious: Yes (Other)
  Sender: FDA-Public Use
  Company Number: None

PATIENT
  Age: 80 Year
  Sex: Female
  Weight: 92.25 kg

DRUGS (4)
  1. DULOXETINE [Suspect]
     Active Substance: DULOXETINE
     Indication: Neuralgia
     Dosage: OTHER QUANTITY : 90 CAPSULE(S);?FREQUENCY : DAILY;?
     Route: 048
     Dates: start: 20230428, end: 20230429
  2. METFORMIN [Concomitant]
     Active Substance: METFORMIN HYDROCHLORIDE
  3. ONE-A-DAY NOS [Concomitant]
     Active Substance: MINERALS\VITAMINS
  4. low doe aspirin [Concomitant]

REACTIONS (2)
  - Anxiety [None]
  - Sensory disturbance [None]

NARRATIVE: CASE EVENT DATE: 20230428
